FAERS Safety Report 15655786 (Version 1)
Quarter: 2018Q4

REPORT INFORMATION
  Report Type: Spontaneous
  Country: US (occurrence: US)
  Receive Date: 20181126
  Receipt Date: 20181126
  Transmission Date: 20190205
  Serious: Yes (Other)
  Sender: FDA-Public Use
  Company Number: US-BAUSCH-BL-2018-030241

PATIENT
  Age: 53 Year
  Sex: Male

DRUGS (3)
  1. CHLORDIAZEPOXIDE. [Suspect]
     Active Substance: CHLORDIAZEPOXIDE
     Indication: ALCOHOL POISONING
     Dosage: 400 DAILY IN DIVIDED DOSES
     Route: 065
     Dates: start: 196310, end: 19631005
  2. PENTOBARBITAL. [Suspect]
     Active Substance: PENTOBARBITAL
     Indication: ALCOHOL POISONING
     Route: 065
     Dates: start: 196310, end: 19631005
  3. DIPHENYLHYDANTOIN [Concomitant]
     Active Substance: PHENYTOIN
     Indication: ALCOHOL POISONING
     Route: 065
     Dates: start: 196310

REACTIONS (6)
  - Drug interaction [Recovered/Resolved]
  - Muscular weakness [Recovering/Resolving]
  - Dysarthria [Recovering/Resolving]
  - Coordination abnormal [Recovering/Resolving]
  - Tremor [Recovering/Resolving]
  - Ataxia [Recovering/Resolving]

NARRATIVE: CASE EVENT DATE: 196310
